FAERS Safety Report 6160347-8 (Version None)
Quarter: 2009Q2

REPORT INFORMATION
  Report Type: 
  Country: None (occurrence: None)
  Receive Date: 20090420
  Receipt Date: 20090414
  Transmission Date: 20091009
  Serious: Yes (Hospitalization)
  Sender: FDA-Public Use
  Company Number: FR-BRISTOL-MYERS SQUIBB COMPANY-14589592

PATIENT
  Age: 53 Year
  Sex: Male
  Weight: 70 kg

DRUGS (9)
  1. ORENCIA [Suspect]
     Dosage: ORENCIA 25 MG;A TOTAL DOSE UP TO 38 X 750 MG, I.E. 28.5 G
     Dates: start: 20040101, end: 20090107
  2. LERCAN [Suspect]
     Dosage: STARTED AUGUST OR SEPTEMBER 2008
     Dates: start: 20080901
  3. CORTANCYL [Concomitant]
  4. TOPALGIC LP [Concomitant]
  5. ACTONEL [Concomitant]
  6. IDEOS [Concomitant]
  7. DIAMICRON [Concomitant]
     Dosage: DIAMICRON LP 30;!DF=30(UNITS NOT SPECIFIED)
  8. GLUCOPHAGE [Concomitant]
  9. PLAQUENIL [Concomitant]

REACTIONS (2)
  - CUTANEOUS VASCULITIS [None]
  - VASCULAR PURPURA [None]
